FAERS Safety Report 18411498 (Version 1)
Quarter: 2020Q4

REPORT INFORMATION
  Report Type: Spontaneous
  Country: CN (occurrence: CN)
  Receive Date: 20201021
  Receipt Date: 20201021
  Transmission Date: 20210114
  Serious: Yes (Other)
  Sender: FDA-Public Use
  Company Number: CN-SA-2020SA294672

PATIENT

DRUGS (5)
  1. ELOXATIN [Suspect]
     Active Substance: OXALIPLATIN
     Indication: COLON NEOPLASM
     Dosage: 150 MG, QD
     Route: 041
     Dates: start: 20200908, end: 20200912
  2. SODIUM CHLORIDE. [Concomitant]
     Active Substance: SODIUM CHLORIDE
     Dosage: 100 ML, QD
     Route: 041
     Dates: start: 20200908, end: 20200912
  3. GLUCOSE [Concomitant]
     Active Substance: DEXTROSE
     Indication: COLON NEOPLASM
     Dosage: 500 ML, QD
     Route: 041
     Dates: start: 20200908, end: 20200912
  4. FLUOROURACIL. [Suspect]
     Active Substance: FLUOROURACIL
     Indication: COLON NEOPLASM
     Dosage: 0.75 G, QD
     Route: 041
     Dates: start: 20200908, end: 20200912
  5. SODIUM CHLORIDE. [Concomitant]
     Active Substance: SODIUM CHLORIDE
     Indication: COLON NEOPLASM
     Dosage: 52 ML, QD
     Route: 042
     Dates: start: 20200908, end: 20200912

REACTIONS (1)
  - Myelosuppression [Recovering/Resolving]

NARRATIVE: CASE EVENT DATE: 20200911
